FAERS Safety Report 5444508-9 (Version None)
Quarter: 2007Q3

REPORT INFORMATION
  Report Type: 
  Country: None (occurrence: None)
  Receive Date: 20070904
  Receipt Date: 20070904
  Transmission Date: 20080115
  Serious: Yes (Life-Threatening, Hospitalization)
  Sender: FDA-Public Use
  Company Number: None

PATIENT
  Sex: Female

DRUGS (17)
  1. METOPROLOL SUCCINATE [Suspect]
     Indication: CARDIAC FLUTTER
     Dosage: PO
     Route: 048
     Dates: start: 20061224, end: 20061224
  2. VERAPAMIL [Suspect]
     Indication: HYPERTENSION
     Dosage: 240MG DAILY PO
     Route: 048
  3. LEVOTHYROXINE SODIUM [Concomitant]
  4. LOSARTAN POSTASSIUM [Concomitant]
  5. ATORVASTATIN [Concomitant]
  6. LEVOFLOXACIN [Concomitant]
  7. PANTOPRAZOLE SODIUM [Concomitant]
  8. IPRATROPIUM BROMIDE [Concomitant]
  9. ASPIRIN [Concomitant]
  10. EVISTA [Concomitant]
  11. ESOMEPRAZOLE MAGNESIUM [Concomitant]
  12. QVAR 40 [Concomitant]
  13. RAZADYNE ER [Concomitant]
  14. ACETAMINOPHEN [Concomitant]
  15. ERGOCALCIFEROL [Concomitant]
  16. ALBUTEROL [Concomitant]
  17. POTASSIUM CHLORIDE [Concomitant]

REACTIONS (8)
  - ATRIOVENTRICULAR BLOCK COMPLETE [None]
  - ATRIOVENTRICULAR BLOCK SECOND DEGREE [None]
  - BRADYCARDIA [None]
  - DYSPNOEA [None]
  - HEADACHE [None]
  - HYPOTENSION [None]
  - NAUSEA [None]
  - VOMITING [None]
